FAERS Safety Report 15683262 (Version 5)
Quarter: 2021Q1

REPORT INFORMATION
  Report Type: Other
  Country: CA (occurrence: CA)
  Receive Date: 20181204
  Receipt Date: 20210308
  Transmission Date: 20210419
  Serious: Yes (Hospitalization, Other)
  Sender: FDA-Public Use
  Company Number: CA-ROCHE-2223708

PATIENT
  Age: 54 Year
  Sex: Female

DRUGS (10)
  1. PERINDOPRIL [Concomitant]
     Active Substance: PERINDOPRIL
  2. FLOVENT [Concomitant]
     Active Substance: FLUTICASONE PROPIONATE
  3. METHADONE [Concomitant]
     Active Substance: METHADONE HYDROCHLORIDE
  4. VENTOLIN [Concomitant]
     Active Substance: ALBUTEROL SULFATE
  5. ESBRIET [Suspect]
     Active Substance: PIRFENIDONE
     Indication: IDIOPATHIC PULMONARY FIBROSIS
     Route: 048
     Dates: start: 20181110, end: 20181116
  6. ESBRIET [Suspect]
     Active Substance: PIRFENIDONE
     Route: 048
     Dates: start: 201812
  7. RANITIDINE. [Concomitant]
     Active Substance: RANITIDINE
  8. ESBRIET [Suspect]
     Active Substance: PIRFENIDONE
     Route: 048
     Dates: start: 20181117, end: 20181123
  9. ESBRIET [Suspect]
     Active Substance: PIRFENIDONE
     Route: 048
     Dates: start: 20181124, end: 201812
  10. NINTEDANIB [Concomitant]
     Active Substance: NINTEDANIB

REACTIONS (11)
  - Vomiting [Unknown]
  - Panic reaction [Unknown]
  - Pleural effusion [Recovering/Resolving]
  - Pneumonia [Unknown]
  - Cough [Not Recovered/Not Resolved]
  - Dyspnoea [Not Recovered/Not Resolved]
  - Pain in extremity [Not Recovered/Not Resolved]
  - Gait disturbance [Not Recovered/Not Resolved]
  - Hypoaesthesia [Not Recovered/Not Resolved]
  - Gastric disorder [Not Recovered/Not Resolved]
  - Agitation [Not Recovered/Not Resolved]

NARRATIVE: CASE EVENT DATE: 20181117
